FAERS Safety Report 10710829 (Version 2)
Quarter: 2015Q1

REPORT INFORMATION
  Report Type: Spontaneous
  Country: US (occurrence: None)
  Receive Date: 20150113
  Receipt Date: 20150122
  Transmission Date: 20150721
  Serious: Yes (Hospitalization)
  Sender: FDA-Public Use
  Company Number: 2015-US-000106

PATIENT
  Sex: Female

DRUGS (2)
  1. XYREM [Suspect]
     Active Substance: SODIUM OXYBATE
     Indication: INSOMNIA
     Dosage: DOSE ADJUSTMENTS, ORAL
     Route: 048
     Dates: start: 201201, end: 2012
  2. XYREM [Suspect]
     Active Substance: SODIUM OXYBATE
     Indication: SLEEP APNOEA SYNDROME
     Dosage: DOSE ADJUSTMENTS, ORAL
     Route: 048
     Dates: start: 201201, end: 2012

REACTIONS (2)
  - Off label use [None]
  - Breast cancer [None]
